FAERS Safety Report 18746895 (Version 1)
Quarter: 2021Q1

REPORT INFORMATION
  Report Type: Spontaneous
  Country: ES (occurrence: ES)
  Receive Date: 20210115
  Receipt Date: 20210115
  Transmission Date: 20210419
  Serious: Yes (Life-Threatening, Hospitalization)
  Sender: FDA-Public Use
  Company Number: ES-TEVA-2021-ES-1869734

PATIENT
  Age: 87 Year
  Sex: Female

DRUGS (2)
  1. QUETIAPINA [Suspect]
     Active Substance: QUETIAPINE
     Indication: SUICIDE ATTEMPT
     Dosage: 2 DOSAGE FORMS DAILY; 0?0?2
     Route: 048
     Dates: start: 20101214, end: 20201214
  2. LORAZEPAM. [Interacting]
     Active Substance: LORAZEPAM
     Indication: SUICIDE ATTEMPT
     Dosage: 50 MG
     Route: 048
     Dates: start: 20190816, end: 20201221

REACTIONS (5)
  - Depressed level of consciousness [Recovering/Resolving]
  - Confusional state [Recovering/Resolving]
  - Pneumonia [Recovering/Resolving]
  - Drug interaction [Unknown]
  - Aspiration [Recovering/Resolving]

NARRATIVE: CASE EVENT DATE: 20201221
